FAERS Safety Report 5569269-4 (Version None)
Quarter: 2007Q4

REPORT INFORMATION
  Report Type: 
  Country: None (occurrence: None)
  Receive Date: 20071220
  Receipt Date: 20071002
  Transmission Date: 20080405
  Serious: No
  Sender: FDA-Public Use
  Company Number: A0685651A

PATIENT
  Sex: Male

DRUGS (8)
  1. AVODART [Suspect]
     Indication: URINARY RETENTION
     Dosage: .5MG PER DAY
     Route: 048
     Dates: start: 20070918, end: 20070923
  2. TEGRETOL [Concomitant]
  3. LISINOPRIL [Concomitant]
  4. CARBAMAZEPINE [Concomitant]
  5. NORVASK [Concomitant]
  6. LAMICTAL [Concomitant]
  7. FLOVENT [Concomitant]
  8. VITAMIN CAP [Concomitant]

REACTIONS (5)
  - ADVERSE EVENT [None]
  - DISABILITY [None]
  - FATIGUE [None]
  - IMMOBILE [None]
  - MENTAL IMPAIRMENT [None]
